FAERS Safety Report 6516304-2 (Version None)
Quarter: 2009Q4

REPORT INFORMATION
  Report Type: 
  Country: None (occurrence: None)
  Receive Date: 20091223
  Receipt Date: 20091221
  Transmission Date: 20100525
  Serious: Yes (Other)
  Sender: FDA-Public Use
  Company Number: US-RB-027164-09

PATIENT
  Age: 59 Year
  Sex: Female

DRUGS (2)
  1. MUCINEX DM [Suspect]
     Route: 048
     Dates: start: 20091217
  2. NYQUIL [Concomitant]
     Dosage: TOOK 1 TABLET
     Route: 048
     Dates: start: 20091218

REACTIONS (1)
  - HYPERTENSION [None]
